FAERS Safety Report 8495151-9 (Version None)
Quarter: 2012Q3

REPORT INFORMATION
  Report Type: 
  Country: None (occurrence: None)
  Receive Date: 20120702
  Receipt Date: 20120702
  Transmission Date: 20120928
  Serious: Yes (Life-Threatening, Hospitalization)
  Sender: FDA-Public Use
  Company Number: None

PATIENT
  Age: 69 Year
  Sex: Male
  Weight: 107.8 kg

DRUGS (17)
  1. FISH OIL [Concomitant]
  2. VICODIN [Concomitant]
  3. ACCUNEB [Concomitant]
  4. FLECAINIDE ACETATE [Concomitant]
  5. NITROSTAT [Concomitant]
  6. FENOFIBRATE [Concomitant]
  7. LISINOPRIL [Concomitant]
  8. FINASTERIDE [Concomitant]
  9. COMBIVENT [Concomitant]
  10. DILTIAZEM [Concomitant]
  11. LASIX [Concomitant]
  12. ASMANEX TWISTHALER [Concomitant]
  13. ROPINIROLE [Concomitant]
  14. KLOR-CON [Concomitant]
  15. PRADAXA [Suspect]
     Indication: ATRIAL FIBRILLATION
     Dosage: 150 MG Q12HRS PO
     Route: 048
     Dates: start: 20120604, end: 20120628
  16. ZANTAC [Concomitant]
  17. FERROUS SULFATE TAB [Concomitant]

REACTIONS (1)
  - MELAENA [None]
